FAERS Safety Report 9891816 (Version 4)
Quarter: 2014Q4

REPORT INFORMATION
  Report Type: Spontaneous
  Country: BR (occurrence: BR)
  Receive Date: 20140212
  Receipt Date: 20141024
  Transmission Date: 20150529
  Serious: Yes (Other)
  Sender: FDA-Public Use
  Company Number: BR-PFIZER INC-2014038043

PATIENT
  Age: 41 Year
  Sex: Female

DRUGS (4)
  1. SUTENT [Suspect]
     Active Substance: SUNITINIB MALATE
     Indication: RENAL CELL CARCINOMA
     Dosage: 50 MG, ALTERNATE DAY
     Route: 048
     Dates: start: 201401
  2. SUTENT [Suspect]
     Active Substance: SUNITINIB MALATE
     Dosage: 37.5 MG, UNK CONTINUOUS
     Route: 048
     Dates: start: 20140107
  3. SUTENT [Suspect]
     Active Substance: SUNITINIB MALATE
     Dosage: 37.5 MG, UNK CONTINUOUS
     Route: 048
     Dates: start: 2014, end: 201407
  4. SUTENT [Suspect]
     Active Substance: SUNITINIB MALATE
     Dosage: 25 MG, UNK
     Route: 048
     Dates: start: 201402

REACTIONS (11)
  - Yellow skin [Unknown]
  - Dysgeusia [Unknown]
  - Nausea [Unknown]
  - Immunodeficiency [Unknown]
  - Bone disorder [Unknown]
  - Renal cell carcinoma [Unknown]
  - Infection [Unknown]
  - Dry mouth [Unknown]
  - Acetabulum fracture [Unknown]
  - Diarrhoea [Unknown]
  - Disease progression [Unknown]

NARRATIVE: CASE EVENT DATE: 2014
